FAERS Safety Report 12677307 (Version 1)
Quarter: 2016Q3

REPORT INFORMATION
  Report Type: Spontaneous
  Country: FR (occurrence: FR)
  Receive Date: 20160823
  Receipt Date: 20160823
  Transmission Date: 20161109
  Serious: Yes (Life-Threatening)
  Sender: FDA-Public Use
  Company Number: FR-PFIZER INC-2016384419

PATIENT
  Age: 50 Year
  Sex: Male
  Weight: 47 kg

DRUGS (5)
  1. POLARAMINE [Concomitant]
     Active Substance: DEXCHLORPHENIRAMINE MALEATE
     Dosage: THREE AMPOULES
     Dates: start: 20160726
  2. TAXOL [Concomitant]
     Active Substance: PACLITAXEL
     Dosage: UNK, CYCLIC (ON DAY ONE AND DAY EIGHT)
     Dates: start: 20160726
  3. ERBITUX [Concomitant]
     Active Substance: CETUXIMAB
     Dosage: UNK, WEEKLY
     Dates: start: 20160726
  4. CARBOPLATINE HOSPIRA [Suspect]
     Active Substance: CARBOPLATIN
     Indication: LARYNGEAL CANCER STAGE IV
     Dosage: 450 MG, ONE CYCLE
     Dates: start: 20160726, end: 20160726
  5. TAXOL [Concomitant]
     Active Substance: PACLITAXEL
     Dosage: UNK

REACTIONS (7)
  - Chills [Recovered/Resolved]
  - Vertigo [Recovered/Resolved]
  - Malaise [Recovered/Resolved]
  - Oxygen saturation decreased [Recovered/Resolved]
  - Hyperhidrosis [Recovered/Resolved]
  - Hypotension [Recovered/Resolved]
  - Hypersensitivity [Recovered/Resolved]

NARRATIVE: CASE EVENT DATE: 20160726
